FAERS Safety Report 5036752-X (Version None)
Quarter: 2006Q2

REPORT INFORMATION
  Report Type: 
  Country: None (occurrence: None)
  Receive Date: 20060601
  Receipt Date: 20051021
  Transmission Date: 20061013
  Serious: No
  Sender: FDA-Public Use
  Company Number: USA0510110072

PATIENT
  Age: 40 Year
  Sex: Female
  Weight: 59.1 kg

DRUGS (1)
  1. CYMBALTA [Suspect]
     Indication: ANXIETY
     Dosage: 60 MG
     Dates: start: 20050920

REACTIONS (8)
  - ASTHENIA [None]
  - DECREASED APPETITE [None]
  - DIARRHOEA [None]
  - FEELING ABNORMAL [None]
  - MUSCLE TWITCHING [None]
  - PANIC ATTACK [None]
  - SLEEP DISORDER [None]
  - TREMOR [None]
